FAERS Safety Report 6321567-2 (Version None)
Quarter: 2009Q3

REPORT INFORMATION
  Report Type: 
  Country: None (occurrence: None)
  Receive Date: 20090819
  Receipt Date: 20090805
  Transmission Date: 20100115
  Serious: Yes (Hospitalization, Other)
  Sender: FDA-Public Use
  Company Number: AUR-APL-2009-00344

PATIENT
  Age: 45 Year
  Sex: Female

DRUGS (5)
  1. CITALOPRAM [Suspect]
     Indication: DEPRESSION
     Dosage: 20-40MG - ORAL
     Route: 048
     Dates: start: 20090501, end: 20090707
  2. CETIRIZINE HCL [Concomitant]
  3. CO-CODAMOL [Concomitant]
  4. FLUOXETINE [Concomitant]
  5. ZOPICLONE [Concomitant]

REACTIONS (2)
  - HEPATITIS ACUTE [None]
  - HEPATORENAL FAILURE [None]
